FAERS Safety Report 5445315-3 (Version None)
Quarter: 2007Q3

REPORT INFORMATION
  Report Type: 
  Country: None (occurrence: None)
  Receive Date: 20070906
  Receipt Date: 20070425
  Transmission Date: 20080115
  Serious: No
  Sender: FDA-Public Use
  Company Number: A0648717A

PATIENT
  Age: 74 Year
  Sex: Male

DRUGS (6)
  1. REQUIP [Suspect]
     Indication: BIPOLAR DISORDER
     Dosage: .25MG SINGLE DOSE
     Route: 048
     Dates: start: 20070424
  2. WELLBUTRIN XL [Concomitant]
  3. DEPAKOTE [Concomitant]
  4. DIGITEK [Concomitant]
  5. TOPROL-XL [Concomitant]
  6. COUMADIN [Concomitant]

REACTIONS (2)
  - EXPIRED DRUG ADMINISTERED [None]
  - INSOMNIA [None]
